FAERS Safety Report 9649333 (Version 1)
Quarter: 2013Q4

REPORT INFORMATION
  Report Type: Spontaneous
  Country: US (occurrence: US)
  Receive Date: 20131028
  Receipt Date: 20131028
  Transmission Date: 20140711
  Serious: Yes (Disabling)
  Sender: FDA-Public Use
  Company Number: US-PFIZER INC-2013306886

PATIENT
  Age: 55 Year
  Sex: Female
  Weight: 67.1 kg

DRUGS (6)
  1. LYRICA [Suspect]
     Indication: PAIN
     Dosage: 100 MG, 3X/DAY
     Dates: start: 201306, end: 201310
  2. LYRICA [Suspect]
     Indication: FIBROMYALGIA
  3. OXYBUTYNIN [Concomitant]
     Dosage: 20 MG, 1X/DAY
  4. PANTOPRAZOLE [Concomitant]
     Dosage: 40 MG, UNK
  5. NALTREXONE [Concomitant]
     Dosage: 4.5 MG, UNK
  6. VITAMIN D [Concomitant]
     Dosage: 50000 MG, MONTHLY

REACTIONS (1)
  - Intervertebral disc degeneration [Unknown]
